FAERS Safety Report 18335800 (Version 2)
Quarter: 2022Q2

REPORT INFORMATION
  Report Type: Spontaneous
  Country: US (occurrence: US)
  Receive Date: 20201001
  Receipt Date: 20220502
  Transmission Date: 20220721
  Serious: No
  Sender: FDA-Public Use
  Company Number: US-PFIZER INC-2015321215

PATIENT
  Age: 57 Year
  Sex: Female

DRUGS (34)
  1. LYRICA [Suspect]
     Active Substance: PREGABALIN
     Dosage: 75 MG, 2X/DAY
     Route: 048
     Dates: start: 20140220, end: 20150729
  2. LYRICA [Suspect]
     Active Substance: PREGABALIN
     Dosage: UNK
  3. NORCO [Concomitant]
     Active Substance: ACETAMINOPHEN\HYDROCODONE BITARTRATE
     Dosage: 2 DF, AS NEEDED (TWICE A DAY)
     Route: 048
     Dates: start: 20140620
  4. ALBUTEROL SULFATE [Concomitant]
     Active Substance: ALBUTEROL SULFATE
     Dosage: 1 DF, AS NEEDED (2.5 MG/3 ML (0.083%), 1 VIAL EVERY 4H AS NEEDED)
     Dates: start: 20140220
  5. PROAIR HFA [Concomitant]
     Active Substance: ALBUTEROL SULFATE
     Indication: Dyspnoea
     Dosage: 2 PUFFS, AS NEEDED (90 MCG/INH AEROSOL, 2 PUFFS EVERY 6 HOURS AS NEEDED)
     Dates: start: 20140220
  6. AMOXICILLIN [Concomitant]
     Active Substance: AMOXICILLIN
     Dosage: 500 MG, 2X/DAY
     Route: 048
     Dates: start: 20130311
  7. ASPIRIN [Concomitant]
     Active Substance: ASPIRIN
     Dosage: 81 MG, 1X/DAY
     Route: 048
     Dates: start: 20140220
  8. ZYRTEC [Concomitant]
     Active Substance: CETIRIZINE HYDROCHLORIDE
     Dosage: 5 MG, 1X/DAY
     Route: 048
     Dates: start: 20140220
  9. CLOPIDOGREL BISULFATE [Concomitant]
     Active Substance: CLOPIDOGREL BISULFATE
     Dosage: 75 MG, DAILY
     Route: 048
     Dates: start: 20140220
  10. DIAZEPAM [Concomitant]
     Active Substance: DIAZEPAM
     Dosage: 10 MG, AS NEEDED (ONE TABLET THREE TIMES A DAY AS NEEDED)
     Route: 048
     Dates: start: 20140220
  11. BENADRYL [Concomitant]
     Active Substance: DIPHENHYDRAMINE HYDROCHLORIDE
     Dosage: 50 MG, AS NEEDED (ONE TABLET EVERY 6 HOURS AS NEEDED)
     Route: 048
     Dates: start: 20140220
  12. GEMFIBROZIL [Concomitant]
     Active Substance: GEMFIBROZIL
     Dosage: 600 MG, 2X/DAY
     Route: 048
     Dates: start: 20140220
  13. GLYBURIDE [Concomitant]
     Active Substance: GLYBURIDE
     Dosage: 5 MG, 2X/DAY
     Route: 048
     Dates: start: 20141007, end: 20150423
  14. GLYBURIDE [Concomitant]
     Active Substance: GLYBURIDE
     Dosage: 10 MG, 2X/DAY
     Route: 048
     Dates: start: 20150423
  15. HYDROCHLOROTHIAZIDE [Concomitant]
     Active Substance: HYDROCHLOROTHIAZIDE
     Dosage: 12.5 MG, 1X/DAY
     Route: 048
     Dates: start: 20140220
  16. IBUPROFEN [Concomitant]
     Active Substance: IBUPROFEN
     Indication: Pain
     Dosage: 800 MG, AS NEEDED (ONE TABLET THREE TIMES A DAY AS NEEDED)
     Route: 048
     Dates: start: 20140814
  17. LISINOPRIL [Concomitant]
     Active Substance: LISINOPRIL
     Dosage: 10 MG, 1X/DAY (20 MG, 1 /2 A TABLET)
     Dates: start: 20140220, end: 20141013
  18. LISINOPRIL [Concomitant]
     Active Substance: LISINOPRIL
     Dosage: 10 MG, DAILY (10 MG STRENGTH)
     Route: 048
     Dates: start: 20141013
  19. MONISTAT 7 [Concomitant]
     Active Substance: MICONAZOLE NITRATE
     Dosage: UNK (USE AS DIRECTED)
     Dates: start: 20150729
  20. NYSTATIN [Concomitant]
     Active Substance: NYSTATIN
     Dosage: UNK, 2X/DAY (100000 UNITS/G TOPICAL)
     Route: 061
     Dates: start: 20140220
  21. PROTONIX [Concomitant]
     Active Substance: PANTOPRAZOLE SODIUM
     Dosage: 40 MG, DAILY
     Route: 048
     Dates: start: 20140530
  22. PAROXETINE HYDROCHLORIDE [Concomitant]
     Active Substance: PAROXETINE HYDROCHLORIDE
     Dosage: 30 MG, DAILY
     Route: 048
     Dates: start: 20140220
  23. SIMVASTATIN [Concomitant]
     Active Substance: SIMVASTATIN
     Dosage: 20 MG, DAILY
     Route: 048
     Dates: start: 20140220
  24. IMITREX [Concomitant]
     Active Substance: SUMATRIPTAN SUCCINATE
     Indication: Headache
     Dosage: UNK, 1X/DAY (5MG NASAL SPRAY)
     Dates: start: 20140501, end: 20150729
  25. IMITREX [Concomitant]
     Active Substance: SUMATRIPTAN SUCCINATE
     Dosage: UNK, AS NEEDED (20MG/INH)
     Dates: start: 20141114
  26. NASACORT AQ [Concomitant]
     Active Substance: TRIAMCINOLONE ACETONIDE
     Dosage: 2 PUFFS, 1X/DAY IN EACH NOSTRIL (55 MCG/ACT NASAL AEROSOL)
     Dates: start: 20150318
  27. LORCET [Concomitant]
     Active Substance: ACETAMINOPHEN\HYDROCODONE BITARTRATE
     Dosage: 2 DF, 2X/DAY (2 TABLETS IN AM AND 2 TABLETS IN PM)
     Dates: start: 20140220, end: 20140523
  28. AMITRIPTYLINE [Concomitant]
     Active Substance: AMITRIPTYLINE
     Dosage: 25 MG, 1X/DAY
     Route: 048
     Dates: start: 20150103, end: 20150128
  29. FLONASE [Concomitant]
     Active Substance: FLUTICASONE PROPIONATE
     Dosage: 2 PUFFS, 1X/DAY IN EACH NOSTRIL (50MCG/INH)
     Dates: start: 20140825, end: 20150318
  30. GABAPENTIN [Concomitant]
     Active Substance: GABAPENTIN
     Indication: Pain
     Dosage: 200 MG, AS NEEDED (THREE TIMES DAILY)
     Route: 048
     Dates: start: 20150103
  31. GABAPENTIN [Concomitant]
     Active Substance: GABAPENTIN
     Dosage: 200 MG, 3X/DAY
     Route: 048
     Dates: start: 20150130, end: 20150629
  32. GABAPENTIN [Concomitant]
     Active Substance: GABAPENTIN
     Dosage: 600 MG, 3X/DAY
     Route: 048
     Dates: start: 20150629, end: 20150911
  33. PREVACID [Concomitant]
     Active Substance: LANSOPRAZOLE
     Dosage: 30 MG, 1X/DAY
     Dates: start: 20140220, end: 20140324
  34. MONISTAT 3 [Concomitant]
     Active Substance: MICONAZOLE NITRATE
     Dosage: UNK, 1X/DAY (USE AS DIRECTED)
     Route: 061
     Dates: start: 20140501, end: 20150629

REACTIONS (3)
  - Musculoskeletal disorder [Unknown]
  - Gait disturbance [Unknown]
  - Gait inability [Unknown]
